FAERS Safety Report 15863243 (Version 2)
Quarter: 2019Q2

REPORT INFORMATION
  Report Type: Report from Study
  Country: US (occurrence: US)
  Receive Date: 20190124
  Receipt Date: 20190516
  Transmission Date: 20190711
  Serious: No
  Sender: FDA-Public Use
  Company Number: PHEH2019US003330

PATIENT
  Sex: Female

DRUGS (1)
  1. COSENTYX [Suspect]
     Active Substance: SECUKINUMAB
     Indication: PSORIATIC ARTHROPATHY
     Dosage: 300 MG, UNK
     Route: 058

REACTIONS (4)
  - Drug ineffective [Unknown]
  - Musculoskeletal stiffness [Unknown]
  - Skin mass [Unknown]
  - Inappropriate schedule of product administration [Unknown]
